FAERS Safety Report 4344437-8 (Version None)
Quarter: 2004Q2

REPORT INFORMATION
  Report Type: 
  Country: None (occurrence: None)
  Receive Date: 20040419
  Receipt Date: 20040407
  Transmission Date: 20050107
  Serious: Yes (Hospitalization)
  Sender: FDA-Public Use
  Company Number: FR-JNJFOC-20040301601

PATIENT
  Age: 55 Year
  Sex: Male

DRUGS (4)
  1. SPORANOX [Suspect]
     Indication: BRONCHOPULMONARY ASPERGILLOSIS
     Dosage: SEE IMAGE
     Route: 048
     Dates: start: 19961201, end: 19971201
  2. SPORANOX [Suspect]
     Indication: BRONCHOPULMONARY ASPERGILLOSIS
     Dosage: SEE IMAGE
     Route: 048
     Dates: start: 20021201, end: 20040301
  3. SKENAN LP (MORPHINE SULFATE) [Concomitant]
  4. STABLON (TIANEPTINE) [Concomitant]

REACTIONS (11)
  - ABDOMINAL HERNIA [None]
  - ARTHRALGIA [None]
  - ASTHENIA [None]
  - BLOOD BILIRUBIN INCREASED [None]
  - BRONCHOPULMONARY ASPERGILLOSIS [None]
  - DEPRESSION [None]
  - DISEASE RECURRENCE [None]
  - MYALGIA [None]
  - NEUROPATHY [None]
  - PAIN [None]
  - RED BLOOD CELL COUNT INCREASED [None]
